FAERS Safety Report 7044218-0 (Version None)
Quarter: 2010Q4

REPORT INFORMATION
  Report Type: 
  Country: None (occurrence: None)
  Receive Date: 20101014
  Receipt Date: 20101005
  Transmission Date: 20110411
  Serious: Yes (Hospitalization, Other)
  Sender: FDA-Public Use
  Company Number: US-BIOGENIDEC-2010BI021799

PATIENT
  Age: 64 Year
  Sex: Female

DRUGS (3)
  1. AVONEX [Suspect]
     Indication: MULTIPLE SCLEROSIS
     Route: 030
     Dates: start: 19960101, end: 20030101
  2. AVONEX [Suspect]
     Route: 030
     Dates: start: 20030101, end: 20030101
  3. AVONEX [Suspect]
     Route: 030
     Dates: start: 20030101

REACTIONS (12)
  - BACK PAIN [None]
  - BLOOD PRESSURE INCREASED [None]
  - DEVICE BREAKAGE [None]
  - GAIT DISTURBANCE [None]
  - LUMBAR VERTEBRAL FRACTURE [None]
  - LUNG INFECTION [None]
  - MALAISE [None]
  - MOBILITY DECREASED [None]
  - NASOPHARYNGITIS [None]
  - PULMONARY EMBOLISM [None]
  - PYREXIA [None]
  - STAPHYLOCOCCAL INFECTION [None]
